FAERS Safety Report 5208213-6 (Version None)
Quarter: 2007Q1

REPORT INFORMATION
  Report Type: 
  Country: None (occurrence: None)
  Receive Date: 20070115
  Receipt Date: 20070110
  Transmission Date: 20070707
  Serious: Yes (Hospitalization, Other)
  Sender: FDA-Public Use
  Company Number: GB-GLAXOSMITHKLINE-B0453960A

PATIENT
  Age: 57 Year
  Sex: Male

DRUGS (9)
  1. SERETIDE [Suspect]
     Indication: ASTHMA
     Dosage: 50MCG TWICE PER DAY
     Route: 055
     Dates: start: 20061030, end: 20061121
  2. ASPIRIN [Concomitant]
     Indication: ANTICOAGULANT THERAPY
     Dosage: 75MG PER DAY
     Route: 048
  3. BECLOMETHASONE DIPROPIONATE [Concomitant]
     Dosage: 100MCG TWICE PER DAY
     Route: 055
  4. GTN-S [Concomitant]
     Indication: ANGINA PECTORIS
     Route: 058
  5. ISOSORBIDE MONONITRATE [Concomitant]
     Dosage: 60MG PER DAY
     Route: 065
  6. NICORANDIL [Concomitant]
     Dosage: 20MG TWICE PER DAY
     Route: 065
  7. VENTOLIN [Concomitant]
     Indication: ASTHMA
     Dosage: 100MCG AS REQUIRED
     Route: 055
  8. SIMVASTATIN [Concomitant]
     Indication: BLOOD CHOLESTEROL INCREASED
     Dosage: 20MG PER DAY
     Route: 048
  9. TILDIEM RETARD [Concomitant]
     Dosage: 90MG TWICE PER DAY
     Route: 065

REACTIONS (1)
  - URINARY HESITATION [None]
